FAERS Safety Report 5040172-1 (Version None)
Quarter: 2006Q2

REPORT INFORMATION
  Report Type: 
  Country: None (occurrence: None)
  Receive Date: 20060630
  Receipt Date: 20060620
  Transmission Date: 20061013
  Serious: Yes (Hospitalization, Other)
  Sender: FDA-Public Use
  Company Number: FRWYE797126JUN06

PATIENT
  Sex: Male

DRUGS (3)
  1. ENBREL [Suspect]
     Indication: ANKYLOSING SPONDYLITIS
     Dosage: UNKNOWN
     Route: 058
     Dates: start: 20050901
  2. IKOREL [Concomitant]
     Dosage: UNKNOWN
  3. BISOPROLOL FUMARATE [Concomitant]
     Dosage: UNKNOWN

REACTIONS (2)
  - ERECTILE DYSFUNCTION [None]
  - MYOCARDIAL INFARCTION [None]
